FAERS Safety Report 8313464-8 (Version None)
Quarter: 2012Q2

REPORT INFORMATION
  Report Type: 
  Country: None (occurrence: None)
  Receive Date: 20120426
  Receipt Date: 20120418
  Transmission Date: 20120825
  Serious: Yes (Other)
  Sender: FDA-Public Use
  Company Number: US-US-EMD SERONO, INC.-7127359

PATIENT
  Sex: Female
  Weight: 91 kg

DRUGS (23)
  1. REBIF [Suspect]
     Indication: MULTIPLE SCLEROSIS
     Route: 058
     Dates: start: 20020901, end: 20100601
  2. DITROPAN [Concomitant]
     Indication: BLADDER DISORDER
  3. CELEBREX [Concomitant]
     Indication: PRODUCT USED FOR UNKNOWN INDICATION
  4. BUSPAR [Concomitant]
     Indication: DEPRESSION
  5. FALAGAN [Concomitant]
     Indication: DRY MOUTH
  6. VITAMIN B-12 [Concomitant]
     Indication: SUPPLEMENTATION THERAPY
  7. UNSPECIFIED PILLS FOR PROBLEMS COUGHING [Concomitant]
     Indication: COUGH
  8. REBIF [Suspect]
     Route: 058
     Dates: start: 20101001
  9. REGLAN [Concomitant]
     Indication: PRODUCT USED FOR UNKNOWN INDICATION
  10. TOPAMAX [Concomitant]
     Indication: LOSS OF CONSCIOUSNESS
  11. PERCOCET [Concomitant]
     Indication: PAIN
     Dosage: 10-650 MG
  12. BUSPAR [Concomitant]
     Indication: NEURALGIA
  13. AMBIEN [Concomitant]
     Indication: SLEEP DISORDER
  14. BENTYL [Concomitant]
     Indication: FUNCTIONAL GASTROINTESTINAL DISORDER
  15. BACLOFEN [Concomitant]
     Indication: PRODUCT USED FOR UNKNOWN INDICATION
  16. ZOCOR [Concomitant]
     Indication: BLOOD CHOLESTEROL INCREASED
  17. SYNTHROID [Concomitant]
     Indication: THYROID DISORDER
     Dates: start: 20120101
  18. DURAGESIC-100 [Concomitant]
     Indication: PAIN
  19. ELAVIL [Concomitant]
     Indication: ANXIETY
     Dosage: AT BEDTIME
  20. ELAVIL [Concomitant]
     Indication: DEPRESSION
  21. PRILOSEC [Concomitant]
     Indication: REFLUX GASTRITIS
  22. MIRAPEX [Concomitant]
     Indication: RESTLESS LEGS SYNDROME
  23. DILAUDID [Concomitant]
     Indication: PAIN

REACTIONS (2)
  - STAPHYLOCOCCAL INFECTION [None]
  - TENDON PAIN [None]
